FAERS Safety Report 8853801 (Version 1)
Quarter: 2012Q4

REPORT INFORMATION
  Report Type: 
  Country: US (occurrence: US)
  Receive Date: 20121022
  Receipt Date: 20121022
  Transmission Date: 20130627
  Serious: No
  Sender: FDA-Public Use
  Company Number: US-JNJFOC-20120912469

PATIENT
  Sex: Female
  Weight: 61.24 kg

DRUGS (2)
  1. INVEGA SUSTENNA [Suspect]
     Indication: TREATMENT NONCOMPLIANCE
     Route: 030
     Dates: start: 201112, end: 201201
  2. SYNTHROID [Concomitant]
     Indication: THYROIDECTOMY
     Route: 048
     Dates: start: 2007

REACTIONS (1)
  - Anaemia [Not Recovered/Not Resolved]
